FAERS Safety Report 14225488 (Version 3)
Quarter: 2018Q2

REPORT INFORMATION
  Report Type: Spontaneous
  Country: US (occurrence: US)
  Receive Date: 20171127
  Receipt Date: 20180606
  Transmission Date: 20180711
  Serious: No
  Sender: FDA-Public Use
  Company Number: US-PFIZER INC-2017508620

PATIENT
  Age: 65 Year
  Sex: Female
  Weight: 63.5 kg

DRUGS (8)
  1. VENLAFAXINE HCL [Suspect]
     Active Substance: VENLAFAXINE HYDROCHLORIDE
     Dosage: UNK
     Dates: start: 20171122
  2. MELOXICAM. [Concomitant]
     Active Substance: MELOXICAM
     Dosage: UNK
     Dates: start: 2015
  3. PROLIA [Concomitant]
     Active Substance: DENOSUMAB
     Dosage: INJECTION TWICE A YEAR
     Dates: start: 201611
  4. MELOXICAM. [Concomitant]
     Active Substance: MELOXICAM
     Indication: OSTEOARTHRITIS
     Dosage: A LARGER DOSE
     Route: 048
     Dates: start: 201404
  5. VENLAFAXINE HCL [Suspect]
     Active Substance: VENLAFAXINE HYDROCHLORIDE
     Indication: ANXIETY
     Dosage: 75 MG, 1X/DAY
     Dates: start: 201707
  6. PROLIA [Concomitant]
     Active Substance: DENOSUMAB
     Indication: OSTEOPOROSIS
     Dosage: UNK
     Dates: start: 201605
  7. MELOXICAM. [Concomitant]
     Active Substance: MELOXICAM
     Dosage: 1 DF, 1X/DAY
     Route: 048
  8. VENLAFAXINE HCL [Suspect]
     Active Substance: VENLAFAXINE HYDROCHLORIDE
     Dosage: 75 MG, 1X/DAY
     Dates: start: 201709, end: 201710

REACTIONS (9)
  - Condition aggravated [Recovered/Resolved]
  - Psychiatric symptom [Recovered/Resolved]
  - Emotional disorder [Recovered/Resolved]
  - Drug ineffective [Recovered/Resolved]
  - Malaise [Recovered/Resolved]
  - Extra dose administered [Unknown]
  - Nasopharyngitis [Recovered/Resolved]
  - Stress [Recovered/Resolved]
  - Irritability [Recovered/Resolved]

NARRATIVE: CASE EVENT DATE: 201709
